FAERS Safety Report 9487120 (Version 2)
Quarter: 2013Q3

REPORT INFORMATION
  Report Type: Spontaneous
  Country: US (occurrence: US)
  Receive Date: 20130829
  Receipt Date: 20130930
  Transmission Date: 20140515
  Serious: Yes (Hospitalization)
  Sender: FDA-Public Use
  Company Number: US-B.I. PHARMACEUTICALS,INC./RIDGEFIELD-2013-BI-26281BP

PATIENT
  Age: 82 Year
  Sex: Female
  Weight: 52.6 kg

DRUGS (6)
  1. PRADAXA [Suspect]
     Indication: ATRIAL FIBRILLATION
     Dosage: 300 MG
     Route: 048
  2. SYNTHROID [Concomitant]
     Indication: THYROXINE DECREASED
     Dosage: 125 MG
  3. CATAPRESS [Concomitant]
     Indication: HYPERTENSION
     Dosage: 12.4 MG
  4. AVAPRO [Concomitant]
     Indication: HYPERTENSION
     Dosage: 150 MG
  5. K DUR [Concomitant]
     Dosage: 10 MG
  6. CUSEF [Concomitant]
     Indication: CARDIAC FAILURE
     Dosage: 40 MG

REACTIONS (2)
  - Gastrointestinal haemorrhage [Recovered/Resolved]
  - Skin discolouration [Unknown]
